FAERS Safety Report 8384494-5 (Version None)
Quarter: 2012Q2

REPORT INFORMATION
  Report Type: 
  Country: None (occurrence: None)
  Receive Date: 20120524
  Receipt Date: 20120521
  Transmission Date: 20120825
  Serious: Yes (Other)
  Sender: FDA-Public Use
  Company Number: GB-JNJFOC-20120508547

PATIENT
  Sex: Female

DRUGS (2)
  1. SIMPONI [Suspect]
     Indication: PRODUCT USED FOR UNKNOWN INDICATION
     Route: 058
     Dates: start: 20120427
  2. SIMPONI [Suspect]
     Route: 058
     Dates: start: 20120327

REACTIONS (3)
  - DIARRHOEA [None]
  - VOMITING [None]
  - HERPES ZOSTER [None]
